FAERS Safety Report 11648042 (Version 1)
Quarter: 2015Q4

REPORT INFORMATION
  Report Type: Report from Study
  Country: PT (occurrence: PT)
  Receive Date: 20151021
  Receipt Date: 20151021
  Transmission Date: 20160304
  Serious: Yes (Hospitalization)
  Sender: FDA-Public Use
  Company Number: PHHY2010PT097234

PATIENT

DRUGS (8)
  1. SOM230 [Suspect]
     Active Substance: PASIREOTIDE
     Dosage: 600 OT, QD (300 AND 300 DAILY)
     Route: 058
     Dates: start: 20100915
  2. KETOCONAZOL [Concomitant]
     Active Substance: KETOCONAZOLE
     Indication: HYPERADRENOCORTICISM
     Route: 065
     Dates: start: 20100706
  3. PRAVASTATIN [Concomitant]
     Active Substance: PRAVASTATIN\PRAVASTATIN SODIUM
     Indication: HYPERCHOLESTEROLAEMIA
     Route: 065
     Dates: start: 20100614
  4. SOM230 [Suspect]
     Active Substance: PASIREOTIDE
     Dosage: 900 OT, QD (600 AND 300 DAILY)
     Route: 058
     Dates: start: 20100907
  5. SOM230 [Suspect]
     Active Substance: PASIREOTIDE
     Dosage: 700 OT, (400 AND 300 DAILY)
     Route: 058
     Dates: start: 20100911
  6. SOM230 [Suspect]
     Active Substance: PASIREOTIDE
     Indication: PITUITARY TUMOUR BENIGN
     Dosage: 600 OT, BID
     Route: 058
     Dates: start: 20100831
  7. SOM230 [Suspect]
     Active Substance: PASIREOTIDE
     Dosage: 500 OT, QD (200 AND 300 DAILY)
     Route: 058
     Dates: start: 20101015
  8. LEVOTHYROXIN [Concomitant]
     Active Substance: LEVOTHYROXINE
     Indication: SECONDARY HYPOTHYROIDISM
     Route: 065
     Dates: start: 20100518

REACTIONS (3)
  - Injection site pain [Recovered/Resolved]
  - Hyperglycaemia [Not Recovered/Not Resolved]
  - Diarrhoea [Recovered/Resolved]

NARRATIVE: CASE EVENT DATE: 20100902
